FAERS Safety Report 14487884 (Version 1)
Quarter: 2018Q1

REPORT INFORMATION
  Report Type: Spontaneous
  Country: US (occurrence: US)
  Receive Date: 20180205
  Receipt Date: 20180205
  Transmission Date: 20180509
  Serious: No
  Sender: FDA-Public Use
  Company Number: US-TAKEDA-2018TUS002374

PATIENT
  Sex: Male
  Weight: 78.46 kg

DRUGS (2)
  1. ENTYVIO [Suspect]
     Active Substance: VEDOLIZUMAB
     Indication: INFLAMMATORY BOWEL DISEASE
     Dosage: UNK
     Route: 042
  2. PREDNISONE. [Concomitant]
     Active Substance: PREDNISONE
     Indication: INFLAMMATORY BOWEL DISEASE
     Dosage: UNK, QD

REACTIONS (3)
  - Sunburn [Unknown]
  - Back pain [Recovering/Resolving]
  - Condition aggravated [Unknown]
